FAERS Safety Report 5306417-5 (Version None)
Quarter: 2007Q2

REPORT INFORMATION
  Report Type: 
  Country: None (occurrence: None)
  Receive Date: 20070424
  Receipt Date: 20070410
  Transmission Date: 20071010
  Serious: Yes (Death)
  Sender: FDA-Public Use
  Company Number: FR-GENENTECH-240356

PATIENT
  Sex: Female

DRUGS (4)
  1. AVASTIN [Suspect]
     Indication: COLON CANCER
  2. FLUOROURACIL [Concomitant]
     Indication: COLON CANCER
  3. FOLINIC ACID [Concomitant]
     Indication: COLON CANCER
  4. IRINOTECAN HCL [Concomitant]
     Indication: COLON CANCER

REACTIONS (1)
  - DEATH [None]
